FAERS Safety Report 25278133 (Version 2)
Quarter: 2025Q2

REPORT INFORMATION
  Report Type: Spontaneous
  Country: US (occurrence: US)
  Receive Date: 20250507
  Receipt Date: 20250606
  Transmission Date: 20250716
  Serious: No
  Sender: PFIZER
  Company Number: US-PFIZER INC-202500093970

PATIENT
  Age: 33 Year
  Sex: Male
  Weight: 112.47 kg

DRUGS (5)
  1. NIVESTYM [Suspect]
     Active Substance: FILGRASTIM-AAFI
     Route: 058
     Dates: start: 20250416
  2. ACYCLOVIR [Concomitant]
     Active Substance: ACYCLOVIR
     Indication: Antiviral prophylaxis
     Dosage: 400 MILLIGRAMS, ONE TABLET BY MOUTH TWICE DAILY
     Route: 048
  3. PANTOPRAZOLE [Concomitant]
     Active Substance: PANTOPRAZOLE
     Indication: Antacid therapy
     Dosage: 40 MG, DAILY (ONE TABLET BY MOUTH IN THE MORNING)
     Route: 048
  4. FAMOTIDINE [Concomitant]
     Active Substance: FAMOTIDINE
     Indication: Antacid therapy
     Dosage: 20 MG, 2X/DAY (ONE TABLET BY MOUTH IN THE MORNING AND ONE TABLET BEFORE BEDTIME)
     Route: 048
  5. DULOXETINE [Concomitant]
     Active Substance: DULOXETINE
     Indication: Neuralgia
     Dosage: 60 MG, 1X/DAY (TAKE ONE CAPSULE BY MOUTH AT BEDTIME)
     Route: 048

REACTIONS (3)
  - Drug dose omission by device [Unknown]
  - Device breakage [Unknown]
  - Device leakage [Unknown]
